FAERS Safety Report 5270386-7 (Version None)
Quarter: 2007Q1

REPORT INFORMATION
  Report Type: 
  Country: None (occurrence: None)
  Receive Date: 20070320
  Receipt Date: 20061108
  Transmission Date: 20070707
  Serious: Yes (Life-Threatening, Hospitalization)
  Sender: FDA-Public Use
  Company Number: GB-BOEHRINGER INGELHEIM GMBH, GERMANY-2006-UK-02978UK

PATIENT
  Sex: Male
  Weight: 82.6 kg

DRUGS (6)
  1. AGGRENOX [Suspect]
     Indication: CEREBROVASCULAR ACCIDENT PROPHYLAXIS
     Route: 048
     Dates: start: 20050301
  2. MICARDIS [Suspect]
     Indication: CEREBROVASCULAR ACCIDENT PROPHYLAXIS
     Route: 048
     Dates: start: 20050301
  3. CLOPIDOGREL [Suspect]
     Indication: CEREBROVASCULAR ACCIDENT PROPHYLAXIS
     Route: 048
     Dates: start: 20050301
  4. ASPIRIN [Concomitant]
  5. DALTEPARIN SODIUM [Concomitant]
     Dosage: 7,5000 UNITS UNSPECIFIED
  6. RAMIPRIL [Concomitant]

REACTIONS (1)
  - ANGINA UNSTABLE [None]
